FAERS Safety Report 6884669-8 (Version None)
Quarter: 2010Q3

REPORT INFORMATION
  Report Type: 
  Country: None (occurrence: None)
  Receive Date: 20100727
  Receipt Date: 20100720
  Transmission Date: 20110219
  Serious: Yes (Death, Hospitalization)
  Sender: FDA-Public Use
  Company Number: DSA_43554_2010

PATIENT
  Sex: Male

DRUGS (3)
  1. XENAZINE [Suspect]
     Indication: TARDIVE DYSKINESIA
     Dosage: DF, 37.5MG, BID, ORAL
     Route: 048
     Dates: end: 20091228
  2. XENAZINE [Suspect]
     Indication: TARDIVE DYSKINESIA
     Dosage: DF, 37.5MG, BID, ORAL
     Route: 048
     Dates: start: 20091229
  3. ANTIHYPERTENSIVES [Concomitant]

REACTIONS (3)
  - CEREBROVASCULAR ACCIDENT [None]
  - PNEUMONIA ASPIRATION [None]
  - SUBDURAL HAEMATOMA [None]
